FAERS Safety Report 7735290-0 (Version None)
Quarter: 2011Q3

REPORT INFORMATION
  Report Type: 
  Country: None (occurrence: None)
  Receive Date: 20110907
  Receipt Date: 20110829
  Transmission Date: 20111222
  Serious: Yes (Hospitalization, Other)
  Sender: FDA-Public Use
  Company Number: US-ASTRAZENECA-2011SE49832

PATIENT
  Age: 34 Year
  Sex: Male

DRUGS (1)
  1. NEXIUM [Suspect]
     Route: 048
     Dates: start: 20100101

REACTIONS (6)
  - REFLUX LARYNGITIS [None]
  - AMYLOIDOSIS [None]
  - LARYNGITIS [None]
  - DRUG DOSE OMISSION [None]
  - DYSPEPSIA [None]
  - APHONIA [None]
